FAERS Safety Report 23293009 (Version 1)
Quarter: 2023Q4

REPORT INFORMATION
  Report Type: Spontaneous
  Country: US (occurrence: US)
  Receive Date: 20231213
  Receipt Date: 20231213
  Transmission Date: 20240110
  Serious: No
  Sender: FDA-Public Use
  Company Number: US-ABBVIE-5528429

PATIENT
  Sex: Female
  Weight: 103 kg

DRUGS (5)
  1. RINVOQ [Suspect]
     Active Substance: UPADACITINIB
     Indication: Eczema
     Dosage: FORM STRENGTH: 15 MILLIGRAM
     Route: 048
     Dates: start: 202307, end: 20231117
  2. CLARITIN [Concomitant]
     Active Substance: LORATADINE
     Indication: Erythema
  3. ANASTROZOLE [Concomitant]
     Active Substance: ANASTROZOLE
     Indication: Endometrial cancer
  4. VENLAFAXINE [Concomitant]
     Active Substance: VENLAFAXINE HYDROCHLORIDE
     Indication: Obsessive-compulsive disorder
  5. BENADRYL [Concomitant]
     Active Substance: DIPHENHYDRAMINE HYDROCHLORIDE
     Indication: Hypersensitivity

REACTIONS (7)
  - Inflammation [Unknown]
  - Therapeutic product effect incomplete [Unknown]
  - Blood glucose decreased [Recovered/Resolved]
  - Fungal infection [Not Recovered/Not Resolved]
  - Eczema [Not Recovered/Not Resolved]
  - Therapeutic response unexpected [Unknown]
  - Pre-existing condition improved [Unknown]

NARRATIVE: CASE EVENT DATE: 20230101
